FAERS Safety Report 5235714-7 (Version None)
Quarter: 2007Q1

REPORT INFORMATION
  Report Type: 
  Country: None (occurrence: None)
  Receive Date: 20061208
  Receipt Date: 20051115
  Transmission Date: 20070707
  Serious: Yes (Other)
  Sender: FDA-Public Use
  Company Number: 2005UW17350

PATIENT
  Age: 89 Year
  Sex: Female

DRUGS (5)
  1. NEXIUM [Suspect]
  2. CRESTOR [Suspect]
     Dosage: 5 MG PO
     Route: 048
     Dates: start: 20051001
  3. CRESTOR [Suspect]
     Dosage: 2.5 MG PO
     Route: 048
     Dates: start: 20051001
  4. TIAZAC [Concomitant]
  5. LORAZEPAM [Concomitant]

REACTIONS (4)
  - ASTHENIA [None]
  - DIZZINESS [None]
  - HYPERSOMNIA [None]
  - PRURITUS [None]
